FAERS Safety Report 15283391 (Version 2)
Quarter: 2019Q2

REPORT INFORMATION
  Report Type: Spontaneous
  Country: US (occurrence: US)
  Receive Date: 20180816
  Receipt Date: 20190624
  Transmission Date: 20190711
  Serious: No
  Sender: FDA-Public Use
  Company Number: US-PFIZER INC-2018324885

PATIENT
  Age: 71 Year
  Sex: Female
  Weight: 56.24 kg

DRUGS (2)
  1. XELJANZ XR [Suspect]
     Active Substance: TOFACITINIB CITRATE
     Dosage: 11 MG, DAILY
     Route: 048
     Dates: start: 20180708
  2. XELJANZ XR [Suspect]
     Active Substance: TOFACITINIB CITRATE
     Indication: RHEUMATOID ARTHRITIS
     Dosage: 11 MG, 1X/DAY
     Dates: start: 20180708

REACTIONS (3)
  - Constipation [Not Recovered/Not Resolved]
  - Condition aggravated [Unknown]
  - Scab [Unknown]

NARRATIVE: CASE EVENT DATE: 2018
